FAERS Safety Report 11145346 (Version 1)
Quarter: 2015Q2

REPORT INFORMATION
  Report Type: Spontaneous
  Country: US (occurrence: None)
  Receive Date: 20150527
  Receipt Date: 20150527
  Transmission Date: 20150821
  Serious: Yes (Hospitalization)
  Sender: FDA-Public Use
  Company Number: None

PATIENT
  Age: 79 Year
  Sex: Female
  Weight: 46.54 kg

DRUGS (1)
  1. CARBOPLATIN. [Suspect]
     Active Substance: CARBOPLATIN
     Dates: start: 20130805

REACTIONS (16)
  - Mental status changes [None]
  - Hyponatraemia [None]
  - Tachypnoea [None]
  - Oxygen saturation decreased [None]
  - Aggression [None]
  - Bundle branch block left [None]
  - Chest pain [None]
  - Tachycardia [None]
  - Acute kidney injury [None]
  - Dyspnoea [None]
  - Disorientation [None]
  - Nausea [None]
  - Vomiting [None]
  - Dementia [None]
  - Disease progression [None]
  - Tremor [None]

NARRATIVE: CASE EVENT DATE: 20130803
